FAERS Safety Report 15844568 (Version 5)
Quarter: 2019Q4

REPORT INFORMATION
  Report Type: Report from Study
  Country: US (occurrence: US)
  Receive Date: 20190118
  Receipt Date: 20191015
  Transmission Date: 20200122
  Serious: Yes (Hospitalization)
  Sender: FDA-Public Use
  Company Number: PHEH2019US002619

PATIENT
  Age: 82 Year
  Sex: Female

DRUGS (2)
  1. ENTRESTO [Suspect]
     Active Substance: SACUBITRIL\VALSARTAN
     Indication: CARDIAC FAILURE CONGESTIVE
     Dosage: UNK
     Route: 048
  2. ENTRESTO [Suspect]
     Active Substance: SACUBITRIL\VALSARTAN
     Indication: CARDIAC FAILURE

REACTIONS (6)
  - Ear infection [Unknown]
  - Hypoacusis [Unknown]
  - Ear discomfort [Unknown]
  - Blood pressure abnormal [Unknown]
  - Fall [Unknown]
  - Weight decreased [Unknown]

NARRATIVE: CASE EVENT DATE: 20190802
